FAERS Safety Report 7526455-1 (Version None)
Quarter: 2011Q2

REPORT INFORMATION
  Report Type: 
  Country: None (occurrence: None)
  Receive Date: 20110606
  Receipt Date: 20110601
  Transmission Date: 20111010
  Serious: Yes (Life-Threatening, Hospitalization)
  Sender: FDA-Public Use
  Company Number: ZA-ASTRAZENECA-2011SE33903

PATIENT
  Age: 47 Year
  Sex: Female

DRUGS (1)
  1. NAROPIN [Suspect]
     Indication: LOCAL ANAESTHESIA
     Route: 008
     Dates: start: 20110527, end: 20110527

REACTIONS (4)
  - RESPIRATORY ARREST [None]
  - ENDOTRACHEAL INTUBATION [None]
  - MECHANICAL VENTILATION [None]
  - LOSS OF CONSCIOUSNESS [None]
